FAERS Safety Report 6107001-6 (Version None)
Quarter: 2009Q1

REPORT INFORMATION
  Report Type: 
  Country: None (occurrence: None)
  Receive Date: 20090309
  Receipt Date: 20090227
  Transmission Date: 20090719
  Serious: Yes (Other)
  Sender: FDA-Public Use
  Company Number: US-BAYER-200914432NA

PATIENT
  Sex: Female

DRUGS (1)
  1. MIRENA [Suspect]
     Indication: DRUG USE FOR UNKNOWN INDICATION
     Route: 015
     Dates: start: 20090219, end: 20090219

REACTIONS (4)
  - COMPLICATION OF DEVICE INSERTION [None]
  - IUCD COMPLICATION [None]
  - PROCEDURAL PAIN [None]
  - UTERINE RUPTURE [None]
